FAERS Safety Report 11204090 (Version 1)
Quarter: 2015Q2

REPORT INFORMATION
  Report Type: Report from Study
  Country: AU (occurrence: AU)
  Receive Date: 20150619
  Receipt Date: 20150619
  Transmission Date: 20150821
  Serious: Yes (Hospitalization)
  Sender: FDA-Public Use
  Company Number: PHHY2015AU073197

PATIENT
  Age: 46 Year
  Sex: Male

DRUGS (2)
  1. ROSUVASTATIN [Concomitant]
     Active Substance: ROSUVASTATIN
     Indication: DYSLIPIDAEMIA
     Dosage: 20 MG, AT NIGHT
     Route: 048
  2. CLOZARIL [Suspect]
     Active Substance: CLOZAPINE
     Indication: SCHIZOPHRENIA
     Dosage: 300 MG, AT NIGHT
     Route: 048

REACTIONS (1)
  - Ludwig angina [Recovering/Resolving]

NARRATIVE: CASE EVENT DATE: 20150521
